FAERS Safety Report 7449413-4 (Version None)
Quarter: 2011Q2

REPORT INFORMATION
  Report Type: 
  Country: None (occurrence: None)
  Receive Date: 20110502
  Receipt Date: 20110426
  Transmission Date: 20111010
  Serious: No
  Sender: FDA-Public Use
  Company Number: US-BIOGENIDEC-2011BI015818

PATIENT
  Sex: Female

DRUGS (2)
  1. TYSABRI [Suspect]
     Indication: MULTIPLE SCLEROSIS
     Route: 042
     Dates: start: 20090608
  2. TYSABRI [Suspect]
     Route: 042

REACTIONS (4)
  - SLEEP APNOEA SYNDROME [None]
  - FATIGUE [None]
  - MULTIPLE ALLERGIES [None]
  - DYSPNOEA [None]
